FAERS Safety Report 6322830-1 (Version None)
Quarter: 2009Q3

REPORT INFORMATION
  Report Type: 
  Country: None (occurrence: None)
  Receive Date: 20090824
  Receipt Date: 20090817
  Transmission Date: 20100115
  Serious: Yes (Disabling)
  Sender: FDA-Public Use
  Company Number: PHEH2009US08824

PATIENT
  Sex: Male
  Weight: 141 kg

DRUGS (13)
  1. RECLAST [Suspect]
     Indication: OSTEOPOROSIS
     Dosage: 5 MG
     Route: 042
     Dates: start: 20080814, end: 20080814
  2. TESTIM [Concomitant]
     Indication: HYPOGONADISM
     Dosage: 5 GM DAILY
  3. SIMVASTATIN [Concomitant]
  4. ZETIA [Concomitant]
  5. LISINOPRIL [Concomitant]
     Dosage: 20 MG/DAY
  6. METOPROLOL [Concomitant]
     Dosage: 50 MG/DAY
  7. REQUIP [Concomitant]
  8. PREVACID [Concomitant]
     Dosage: UNK
  9. CYMBALTA [Concomitant]
     Dosage: UNK
  10. LOVAZA [Concomitant]
  11. VITAMIN D [Concomitant]
  12. OYSCO [Concomitant]
  13. QUININE [Concomitant]

REACTIONS (10)
  - ARTHRALGIA [None]
  - BONE PAIN [None]
  - ENDODONTIC PROCEDURE [None]
  - INSOMNIA [None]
  - JAW DISORDER [None]
  - MYALGIA [None]
  - NEURALGIA [None]
  - PAIN IN JAW [None]
  - PRURITUS [None]
  - RASH GENERALISED [None]
